FAERS Safety Report 9037825 (Version 7)
Quarter: 2013Q3

REPORT INFORMATION
  Report Type: Spontaneous
  Country: BR (occurrence: BR)
  Receive Date: 20130129
  Receipt Date: 20130807
  Transmission Date: 20140515
  Serious: Yes (Other)
  Sender: FDA-Public Use
  Company Number: BR-BRISTOL-MYERS SQUIBB COMPANY-17227182

PATIENT
  Age: 62 Year
  Sex: Male

DRUGS (1)
  1. SPRYCEL [Suspect]
     Route: 048

REACTIONS (17)
  - Malignant neoplasm progression [Not Recovered/Not Resolved]
  - Glaucoma [Unknown]
  - VIIth nerve paralysis [Recovering/Resolving]
  - Platelet count decreased [Unknown]
  - Platelet count increased [Unknown]
  - Blood pressure decreased [Unknown]
  - Nasal discomfort [Unknown]
  - Self esteem decreased [Unknown]
  - Pain [Unknown]
  - Anaemia [Unknown]
  - Syncope [Unknown]
  - Depression [Unknown]
  - Toothache [Unknown]
  - White blood cell count decreased [Unknown]
  - Furuncle [Recovering/Resolving]
  - Malaise [Unknown]
  - Sensitivity of teeth [Unknown]
